FAERS Safety Report 4595738-X (Version None)
Quarter: 2005Q1

REPORT INFORMATION
  Report Type: 
  Country: None (occurrence: None)
  Receive Date: 20050224
  Receipt Date: 20050215
  Transmission Date: 20050727
  Serious: Yes (Hospitalization)
  Sender: FDA-Public Use
  Company Number: ERP05000017

PATIENT
  Age: 5 Year
  Sex: Male

DRUGS (1)
  1. ACTONEL [Suspect]
     Dosage: 5 MG, ORAL
     Route: 048

REACTIONS (1)
  - MENINGITIS HAEMOPHILUS [None]
